FAERS Safety Report 13395210 (Version 1)
Quarter: 2017Q1

REPORT INFORMATION
  Report Type: Spontaneous
  Country: US (occurrence: US)
  Receive Date: 20170331
  Receipt Date: 20170331
  Transmission Date: 20170429
  Serious: Yes (Disabling)
  Sender: FDA-Public Use
  Company Number: None

PATIENT
  Age: 37 Year
  Sex: Female
  Weight: 90 kg

DRUGS (2)
  1. CIPROFLAXIN [Suspect]
     Active Substance: CIPROFLOXACIN
     Indication: EAR INFECTION
     Dosage: ?          QUANTITY:1 CAPSULE(S); 3 TIMES A DAY ORAL?
     Route: 048
     Dates: start: 20170317, end: 20170321
  2. CIPROFLAXIN [Suspect]
     Active Substance: CIPROFLOXACIN
     Indication: SINUSITIS
     Dosage: ?          QUANTITY:1 CAPSULE(S); 3 TIMES A DAY ORAL?
     Route: 048
     Dates: start: 20170317, end: 20170321

REACTIONS (12)
  - Paraesthesia [None]
  - Fear [None]
  - Tremor [None]
  - Plantar fasciitis [None]
  - Fatigue [None]
  - Anxiety [None]
  - Tendon pain [None]
  - Insomnia [None]
  - Arthralgia [None]
  - Muscular weakness [None]
  - Panic attack [None]
  - Musculoskeletal pain [None]

NARRATIVE: CASE EVENT DATE: 20170322
